FAERS Safety Report 18055610 (Version 2)
Quarter: 2020Q3

REPORT INFORMATION
  Report Type: Report from Study
  Country: None (occurrence: US)
  Receive Date: 20200722
  Receipt Date: 20200903
  Transmission Date: 20201103
  Serious: Yes (Hospitalization, Other)
  Sender: FDA-Public Use
  Company Number: US-ABBVIE-18K-163-2331555-00

PATIENT
  Age: 66 Year
  Sex: Female
  Weight: 94.43 kg

DRUGS (27)
  1. POTASSIUM [Concomitant]
     Active Substance: POTASSIUM
     Indication: FLUID RETENTION
  2. METHOTREXATE. [Concomitant]
     Active Substance: METHOTREXATE
     Indication: RHEUMATOID ARTHRITIS
  3. L?LYSINE [Concomitant]
     Active Substance: LYSINE
     Indication: IMMUNE SYSTEM DISORDER
  4. HUMIRA [Suspect]
     Active Substance: ADALIMUMAB
     Indication: RHEUMATOID ARTHRITIS
     Route: 058
     Dates: start: 2016
  5. FIORICET [Concomitant]
     Active Substance: ACETAMINOPHEN\BUTALBITAL\CAFFEINE
     Indication: PAIN
  6. BIOTIN [Concomitant]
     Active Substance: BIOTIN
     Indication: ALOPECIA
  7. MAGNESIUM [Concomitant]
     Active Substance: MAGNESIUM
     Indication: PRODUCT USED FOR UNKNOWN INDICATION
  8. DULOXETINE. [Concomitant]
     Active Substance: DULOXETINE
     Indication: NEUROPATHY PERIPHERAL
  9. AGGRENOX [Concomitant]
     Active Substance: ASPIRIN\DIPYRIDAMOLE
     Indication: ANTICOAGULANT THERAPY
  10. VITAMIN E [Concomitant]
     Active Substance: .ALPHA.-TOCOPHEROL
     Indication: IMMUNE SYSTEM DISORDER
  11. CHONDROITIN [Concomitant]
     Active Substance: CHONDROITIN
     Indication: CHONDROPATHY
  12. OXYCODONE [Concomitant]
     Active Substance: OXYCODONE
     Indication: PAIN
  13. LEVOTHYROXINE. [Concomitant]
     Active Substance: LEVOTHYROXINE
     Indication: THYROID DISORDER
  14. HUMIRA [Suspect]
     Active Substance: ADALIMUMAB
     Indication: FIBROMYALGIA
     Route: 058
     Dates: start: 2017, end: 202003
  15. INSULIN [Concomitant]
     Active Substance: INSULIN NOS
     Indication: TYPE 2 DIABETES MELLITUS
  16. BISOPROLOL [Concomitant]
     Active Substance: BISOPROLOL
     Indication: HYPERTENSION
  17. BUMETANIDE. [Concomitant]
     Active Substance: BUMETANIDE
     Indication: FLUID RETENTION
  18. ALLOPURINOL. [Concomitant]
     Active Substance: ALLOPURINOL
     Indication: GOUT
  19. BISOPROLOL FUMARATE. [Concomitant]
     Active Substance: BISOPROLOL FUMARATE
     Indication: HYPERTENSION
  20. HUMIRA [Suspect]
     Active Substance: ADALIMUMAB
     Route: 058
     Dates: start: 202006
  21. CBD OIL [Concomitant]
     Active Substance: CANNABIDIOL\HERBALS
     Indication: PAIN
  22. VITAMIN B12 [Concomitant]
     Active Substance: CYANOCOBALAMIN
     Indication: PRODUCT USED FOR UNKNOWN INDICATION
  23. GLUCOSAMINE [Concomitant]
     Active Substance: GLUCOSAMINE
     Indication: CHONDROPATHY
  24. SUPER B COMPLEX [Concomitant]
     Active Substance: CYANOCOBALAMIN\DEXPANTHENOL\NIACINAMIDE\PYRIDOXINE HYDROCHLORIDE\RIBOFLAVIN 5^-PHOSPHATE SODIUM\THIAMINE HYDROCHLORIDE\VITAMIN B COMPLEX
     Indication: VITAMIN SUPPLEMENTATION
  25. FLUTICASONE. [Concomitant]
     Active Substance: FLUTICASONE
     Indication: HYPERSENSITIVITY
  26. FOLIC ACID. [Concomitant]
     Active Substance: FOLIC ACID
     Indication: VITAMIN SUPPLEMENTATION
  27. ZYRTECSET [Concomitant]
     Active Substance: CETIRIZINE HYDROCHLORIDE
     Indication: HYPERSENSITIVITY

REACTIONS (12)
  - Post procedural contusion [Not Recovered/Not Resolved]
  - Arthritis [Unknown]
  - Limb asymmetry [Unknown]
  - Foot deformity [Recovering/Resolving]
  - Gastrectomy [Recovering/Resolving]
  - Complication of device insertion [Unknown]
  - Arthralgia [Not Recovered/Not Resolved]
  - Fall [Recovering/Resolving]
  - Device breakage [Recovering/Resolving]
  - Contusion [Not Recovered/Not Resolved]
  - Femur fracture [Recovering/Resolving]
  - Impaired healing [Recovering/Resolving]

NARRATIVE: CASE EVENT DATE: 2018
